FAERS Safety Report 7537659-6 (Version None)
Quarter: 2011Q2

REPORT INFORMATION
  Report Type: 
  Country: None (occurrence: None)
  Receive Date: 20110609
  Receipt Date: 20071018
  Transmission Date: 20111010
  Serious: Yes (Other)
  Sender: FDA-Public Use
  Company Number: PHFR2007IE02513

PATIENT
  Sex: Female

DRUGS (9)
  1. GLUCOPHAGE [Concomitant]
     Indication: HYPERGLYCAEMIA
     Dosage: 500 MG, TID
     Route: 048
  2. CLOZAPINE [Suspect]
     Dosage: 550MG / DAY
     Route: 048
  3. MELOXICAM [Concomitant]
     Dosage: 7.5 MG PER DAY
     Route: 048
  4. ISTIN [Concomitant]
     Indication: HYPERTENSION
     Dosage: 5 MG, QD
     Route: 048
  5. COVERSYL/BEL/ [Concomitant]
     Dosage: 2.5 MG PER DAY
     Route: 065
  6. KEMADREN [Concomitant]
     Dosage: 5 MG PER DAY
     Route: 048
  7. ASPIRIN [Concomitant]
     Dosage: 75 MG PER DAY
     Route: 048
  8. CLOZAPINE [Suspect]
     Indication: SCHIZOPHRENIA
     Route: 048
     Dates: start: 20040702
  9. LASIX [Concomitant]
     Dosage: 400 MG PER DAY
     Route: 048

REACTIONS (3)
  - TRANSIENT ISCHAEMIC ATTACK [None]
  - LACUNAR INFARCTION [None]
  - POSTURE ABNORMAL [None]
